FAERS Safety Report 5377618-5 (Version None)
Quarter: 2007Q3

REPORT INFORMATION
  Report Type: 
  Country: None (occurrence: None)
  Receive Date: 20070703
  Receipt Date: 20070627
  Transmission Date: 20080115
  Serious: Yes (Hospitalization, Other)
  Sender: FDA-Public Use
  Company Number: DE-PFIZER INC-2007022910

PATIENT
  Sex: Female
  Weight: 70 kg

DRUGS (2)
  1. ZOLOFT [Suspect]
     Indication: DEPRESSION
     Dosage: DAILY DOSE:200MG
     Route: 048
     Dates: start: 20060801, end: 20070321
  2. CONTRACEPTIVE, UNSPECIFIED [Concomitant]

REACTIONS (2)
  - OVARIAN CYST [None]
  - URINARY INCONTINENCE [None]
